FAERS Safety Report 8448212-4 (Version None)
Quarter: 2012Q2

REPORT INFORMATION
  Report Type: 
  Country: None (occurrence: None)
  Receive Date: 20120619
  Receipt Date: 20120611
  Transmission Date: 20120825
  Serious: Yes (Other)
  Sender: FDA-Public Use
  Company Number: ES-ELI_LILLY_AND_COMPANY-ES201205004067

PATIENT
  Sex: Female

DRUGS (1)
  1. FORTEO [Suspect]
     Dosage: UNK UNK, UNKNOWN
     Route: 065
     Dates: start: 20120117

REACTIONS (6)
  - TIBIA FRACTURE [None]
  - TREMOR [None]
  - MENISCUS LESION [None]
  - TACHYCARDIA [None]
  - PARAESTHESIA [None]
  - PELVIC FRACTURE [None]
